FAERS Safety Report 18393928 (Version 1)
Quarter: 2020Q4

REPORT INFORMATION
  Report Type: Spontaneous
  Country: FR (occurrence: FR)
  Receive Date: 20201016
  Receipt Date: 20201016
  Transmission Date: 20210114
  Serious: Yes (Other)
  Sender: FDA-Public Use
  Company Number: FR-BAUSCH-BL-2020-028824

PATIENT
  Age: 54 Year
  Sex: Female

DRUGS (12)
  1. NIVESTIM [Suspect]
     Active Substance: FILGRASTIM
     Indication: NEUTROPENIA
     Dosage: J2 AND J7
     Route: 058
     Dates: start: 20200801
  2. EXACYL [Suspect]
     Active Substance: TRANEXAMIC ACID
     Indication: GASTROINTESTINAL HAEMORRHAGE
     Route: 048
  3. MACROGOL (DISTEARATE DE) [Suspect]
     Active Substance: POLYETHYLENE GLYCOLS
     Indication: CONSTIPATION
     Route: 048
  4. LANSOPRAZOLE. [Suspect]
     Active Substance: LANSOPRAZOLE
     Indication: PROPHYLAXIS AGAINST GASTROINTESTINAL ULCER
     Route: 048
  5. ACIDE FOLIQUE [Suspect]
     Active Substance: FOLIC ACID
     Indication: VITAMIN SUPPLEMENTATION
     Route: 048
  6. PARACETAMOL [Suspect]
     Active Substance: ACETAMINOPHEN
     Indication: PAIN
     Dosage: IF NECESSARY
     Route: 048
  7. LACTULOSE. [Suspect]
     Active Substance: LACTULOSE
     Indication: CONSTIPATION
     Dosage: MORNING, NOON AND EVENING
     Route: 048
  8. METOCLOPRAMIDE. [Suspect]
     Active Substance: METOCLOPRAMIDE
     Indication: PROPHYLAXIS OF NAUSEA AND VOMITING
     Dosage: AS REQUIRED
     Route: 048
  9. LOVENOX [Suspect]
     Active Substance: ENOXAPARIN SODIUM
     Indication: THROMBOSIS PROPHYLAXIS
     Route: 058
     Dates: start: 20200808
  10. BINOCRIT [Suspect]
     Active Substance: ERYTHROPOIETIN
     Indication: ANAEMIA PROPHYLAXIS
     Route: 058
  11. PREDNISOLONE. [Suspect]
     Active Substance: PREDNISOLONE
     Indication: BREAST CANCER
     Dosage: DECREASING
     Route: 048
  12. HALAVEN [Suspect]
     Active Substance: ERIBULIN MESYLATE
     Indication: BREAST CANCER
     Dosage: D1 AND D8 ON 21-DAY CYCLES
     Route: 042
     Dates: start: 20200731

REACTIONS (1)
  - Thrombocytopenia [Not Recovered/Not Resolved]

NARRATIVE: CASE EVENT DATE: 20200810
